FAERS Safety Report 8153014-2 (Version None)
Quarter: 2012Q1

REPORT INFORMATION
  Report Type: 
  Country: None (occurrence: None)
  Receive Date: 20120221
  Receipt Date: 20120210
  Transmission Date: 20120608
  Serious: Yes (Other)
  Sender: FDA-Public Use
  Company Number: US-UCBSA-8043138

PATIENT
  Age: 26 Year
  Sex: Female

DRUGS (5)
  1. FOLIC ACID [Concomitant]
     Indication: SUPPLEMENTATION THERAPY
     Dosage: DOSE FREQ.: DAILY
     Route: 048
     Dates: start: 20050101
  2. VITAMIN AND MINERAL PRENATAL SUPPLEMENT W/ FOLIC ACID CAP [Concomitant]
     Indication: SUPPLEMENTATION THERAPY
     Dosage: DOSE FREQ.: DAILY
     Route: 048
     Dates: start: 20080101
  3. KEPPRA [Suspect]
     Indication: CONVULSION
     Route: 048
     Dates: start: 20080401
  4. DILANTIN [Concomitant]
     Indication: CONVULSION
     Dates: start: 20050101
  5. CALCIUM + VITAMIN D [Concomitant]
     Indication: SUPPLEMENTATION THERAPY
     Dosage: DOSE FREQ.: DAILY
     Route: 048

REACTIONS (3)
  - GRAND MAL CONVULSION [None]
  - GESTATIONAL DIABETES [None]
  - MATERNAL EXPOSURE DURING PREGNANCY [None]
